FAERS Safety Report 6753097-8 (Version None)
Quarter: 2010Q2

REPORT INFORMATION
  Report Type: 
  Country: None (occurrence: None)
  Receive Date: 20100601
  Receipt Date: 20100521
  Transmission Date: 20101027
  Serious: Yes (Other)
  Sender: FDA-Public Use
  Company Number: 012380

PATIENT
  Sex: Female
  Weight: 94 kg

DRUGS (14)
  1. CIMZIA [Suspect]
     Indication: CROHN'S DISEASE
     Dosage: SUBCUTANEOUS
     Route: 058
     Dates: start: 20091001
  2. BETAPACE [Concomitant]
  3. THIAZIDES [Concomitant]
  4. PRINIVIL [Suspect]
  5. SYNTHROID [Concomitant]
  6. ALLEGRA [Concomitant]
  7. NEXIUM [Concomitant]
  8. JANUVIA [Concomitant]
  9. NORVASC [Concomitant]
  10. METFORMIN HCL [Concomitant]
  11. FOLIC ACID [Concomitant]
  12. SYMBYAX [Concomitant]
  13. VALIUM [Concomitant]
  14. NULEV [Concomitant]

REACTIONS (4)
  - ABDOMINAL PAIN UPPER [None]
  - CATARACT OPERATION [None]
  - DRUG DOSE OMISSION [None]
  - FREQUENT BOWEL MOVEMENTS [None]
